FAERS Safety Report 7373182-X (Version None)
Quarter: 2011Q1

REPORT INFORMATION
  Report Type: 
  Country: None (occurrence: None)
  Receive Date: 20110324
  Receipt Date: 20110317
  Transmission Date: 20110831
  Serious: Yes (Other)
  Sender: FDA-Public Use
  Company Number: CN-PFIZER INC-2011059640

PATIENT

DRUGS (2)
  1. MANNITOL [Concomitant]
  2. SOLU-MEDROL [Suspect]
     Dosage: 1000 MG, SINGLE

REACTIONS (1)
  - LUNG DISORDER [None]
